FAERS Safety Report 18665026 (Version 2)
Quarter: 2021Q4

REPORT INFORMATION
  Report Type: Spontaneous
  Country: IN (occurrence: IN)
  Receive Date: 20201225
  Receipt Date: 20211229
  Transmission Date: 20220303
  Serious: Yes (Hospitalization, Other)
  Sender: FDA-Public Use
  Company Number: IN-TORRENT-00002673

PATIENT
  Age: 48 Year
  Sex: Male

DRUGS (1)
  1. CARBAMAZEPINE [Suspect]
     Active Substance: CARBAMAZEPINE
     Indication: Psychiatric symptom
     Dosage: 400 MG TWICE DAILY
     Route: 065

REACTIONS (4)
  - Toxicity to various agents [Recovered/Resolved]
  - Overdose [Unknown]
  - Loss of consciousness [Unknown]
  - Respiration abnormal [Unknown]
